FAERS Safety Report 4348688-8 (Version None)
Quarter: 2004Q2

REPORT INFORMATION
  Report Type: 
  Country: None (occurrence: None)
  Receive Date: 20040423
  Receipt Date: 20040412
  Transmission Date: 20050107
  Serious: Yes (Hospitalization)
  Sender: FDA-Public Use
  Company Number: 205239

PATIENT
  Age: 51 Year
  Sex: Female

DRUGS (13)
  1. HERCEPTIN [Suspect]
     Indication: BREAST CANCER
     Dosage: SEE IMAGE
     Route: 042
  2. DOCETAXEL (DOCETAXEL) [Suspect]
     Indication: BREAST CANCER
     Dosage: INTRAVENOUS
     Route: 042
  3. DOXORUBICIN HCL [Suspect]
     Indication: BREAST CANCER
     Dosage: 113 MG, Q3W, INTRAVENOUS
     Route: 042
     Dates: start: 20031031, end: 20040107
  4. CYCLOPHOSPHAMIDE [Suspect]
     Indication: BREAST CANCER
     Dosage: 1130 MG, Q3W, INTRAVENOUS
     Route: 042
     Dates: start: 20031031, end: 20040107
  5. ALTACE [Concomitant]
  6. TOPROL-XL [Concomitant]
  7. PREVACID [Concomitant]
  8. NEURONTIN [Concomitant]
  9. FLEXERIL [Concomitant]
  10. ZYRTEC [Concomitant]
  11. CELEBREX [Concomitant]
  12. ULTRAM [Concomitant]
  13. LEXAPRO [Concomitant]

REACTIONS (4)
  - FEBRILE NEUTROPENIA [None]
  - HYPOTENSION [None]
  - MUCOSAL INFLAMMATION [None]
  - UROSEPSIS [None]
